FAERS Safety Report 4760129-5 (Version None)
Quarter: 2005Q3

REPORT INFORMATION
  Report Type: 
  Country: None (occurrence: None)
  Receive Date: 20050902
  Receipt Date: 20050622
  Transmission Date: 20060218
  Serious: No
  Sender: FDA-Public Use
  Company Number: US-GLAXOSMITHKLINE-A0563827A

PATIENT
  Age: 67 Year
  Sex: Female

DRUGS (5)
  1. REQUIP [Suspect]
     Indication: PARKINSON'S DISEASE
     Dosage: .25MG PER DAY
     Route: 048
     Dates: start: 20050502
  2. BLOOD PRESSURE MEDICATION [Concomitant]
  3. NORVASC [Concomitant]
  4. WATER PILL [Concomitant]
  5. ALEVE [Concomitant]
     Route: 065

REACTIONS (4)
  - DIZZINESS [None]
  - DRUG INEFFECTIVE [None]
  - FATIGUE [None]
  - NAUSEA [None]
